FAERS Safety Report 5340257-6 (Version None)
Quarter: 2007Q2

REPORT INFORMATION
  Report Type: 
  Country: None (occurrence: None)
  Receive Date: 20070531
  Receipt Date: 20070522
  Transmission Date: 20071010
  Serious: Yes (Other)
  Sender: FDA-Public Use
  Company Number: US-ASTRAZENECA-2007UW12759

PATIENT
  Age: 59 Year
  Sex: Female
  Weight: 142 kg

DRUGS (8)
  1. FASLODEX [Suspect]
     Indication: BREAST CANCER
     Route: 030
  2. OXYCONTIN [Concomitant]
  3. XANAX [Concomitant]
  4. ALBUTEROL [Concomitant]
  5. METOPROLOL SUCCINATE [Concomitant]
  6. GLYBURIDE [Concomitant]
  7. SYNTHROID [Concomitant]
  8. LIPITOR [Concomitant]

REACTIONS (2)
  - COUGH [None]
  - DYSPNOEA EXERTIONAL [None]
